FAERS Safety Report 4980560-2 (Version None)
Quarter: 2006Q2

REPORT INFORMATION
  Report Type: 
  Country: None (occurrence: None)
  Receive Date: 20060424
  Receipt Date: 20050112
  Transmission Date: 20061013
  Serious: Yes (Hospitalization)
  Sender: FDA-Public Use
  Company Number: US-MERCK-0501USA01874

PATIENT
  Age: 79 Year
  Sex: Male
  Weight: 95 kg

DRUGS (1)
  1. VIOXX [Suspect]
     Indication: POST PROCEDURAL COMPLICATION
     Route: 048
     Dates: start: 20000101

REACTIONS (6)
  - CARDIAC FAILURE CONGESTIVE [None]
  - FLUID RETENTION [None]
  - FURUNCLE [None]
  - GALLBLADDER DISORDER [None]
  - SWELLING [None]
  - TRANSIENT ISCHAEMIC ATTACK [None]
